FAERS Safety Report 6245223-4 (Version None)
Quarter: 2009Q2

REPORT INFORMATION
  Report Type: 
  Country: None (occurrence: None)
  Receive Date: 20090623
  Receipt Date: 20090623
  Transmission Date: 20091009
  Serious: Yes (Other)
  Sender: FDA-Public Use
  Company Number: None

PATIENT
  Age: 36 Year
  Sex: Female
  Weight: 70.3075 kg

DRUGS (1)
  1. MIRENA [Suspect]
     Indication: CONTRACEPTION
     Dates: start: 20061201, end: 20090620

REACTIONS (11)
  - ACNE CYSTIC [None]
  - AFFECTIVE DISORDER [None]
  - AGITATION [None]
  - BREAST PAIN [None]
  - ECZEMA [None]
  - EMOTIONAL DISORDER [None]
  - FATIGUE [None]
  - HAIR GROWTH ABNORMAL [None]
  - HAIR TEXTURE ABNORMAL [None]
  - LIBIDO DECREASED [None]
  - WEIGHT INCREASED [None]
